FAERS Safety Report 7789514-4 (Version None)
Quarter: 2011Q3

REPORT INFORMATION
  Report Type: 
  Country: None (occurrence: None)
  Receive Date: 20110930
  Receipt Date: 20110919
  Transmission Date: 20111222
  Serious: Yes (Other)
  Sender: FDA-Public Use
  Company Number: US-ELI_LILLY_AND_COMPANY-US201109005925

PATIENT
  Sex: Female

DRUGS (4)
  1. SYNTHROID [Concomitant]
  2. CYMBALTA [Suspect]
     Indication: MYALGIA
     Dosage: 30 MG, QD
     Dates: start: 20100101, end: 20110701
  3. AMBIEN [Concomitant]
     Dosage: UNK, PRN
  4. ZOLOFT [Concomitant]

REACTIONS (14)
  - FLUID RETENTION [None]
  - ABDOMINAL DISTENSION [None]
  - LIVER DISORDER [None]
  - MALAISE [None]
  - POLLAKIURIA [None]
  - ATRIAL FIBRILLATION [None]
  - OEDEMA PERIPHERAL [None]
  - THYROID CANCER [None]
  - WEIGHT INCREASED [None]
  - PAIN [None]
  - KIDNEY ENLARGEMENT [None]
  - ARRHYTHMIA [None]
  - PALPITATIONS [None]
  - GALLBLADDER DISORDER [None]
